FAERS Safety Report 6634128-2 (Version None)
Quarter: 2010Q1

REPORT INFORMATION
  Report Type: 
  Country: None (occurrence: None)
  Receive Date: 20100315
  Receipt Date: 20100303
  Transmission Date: 20100710
  Serious: Yes (Death, Hospitalization, Other)
  Sender: FDA-Public Use
  Company Number: US-ELI_LILLY_AND_COMPANY-US201001005497

PATIENT
  Sex: Female

DRUGS (3)
  1. ZYPREXA [Suspect]
     Dosage: 20 MG, DAILY (1/D)
     Route: 065
  2. ZYPREXA [Suspect]
     Dosage: 40 MG, UNK
  3. ZOFRAN [Concomitant]
     Indication: TARDIVE DYSKINESIA

REACTIONS (8)
  - CARDIAC FAILURE [None]
  - CARDIOVASCULAR DISORDER [None]
  - DECUBITUS ULCER [None]
  - HOSPITALISATION [None]
  - HYPOTENSION [None]
  - INFECTION [None]
  - OVERDOSE [None]
  - PAIN [None]
